FAERS Safety Report 6884673-X (Version None)
Quarter: 2010Q3

REPORT INFORMATION
  Report Type: 
  Country: None (occurrence: None)
  Receive Date: 20100727
  Receipt Date: 20100716
  Transmission Date: 20110219
  Serious: Yes (Hospitalization)
  Sender: FDA-Public Use
  Company Number: 2010SP001915

PATIENT
  Age: 55 Year
  Sex: Male
  Weight: 87.1 kg

DRUGS (6)
  1. LUNESTA [Suspect]
     Indication: INSOMNIA
     Dosage: 3 MG, ORAL
     Route: 048
     Dates: start: 20091001, end: 20100704
  2. ALCOHOL /00002101/) [Suspect]
  3. HYDROCODONE BITARTRATE [Concomitant]
  4. ATENOLOL [Concomitant]
  5. EXCEDRIN (MIGRAINE) [Concomitant]
  6. AMBIEN [Concomitant]

REACTIONS (5)
  - BLOOD ALCOHOL INCREASED [None]
  - LEGAL PROBLEM [None]
  - RIB FRACTURE [None]
  - ROAD TRAFFIC ACCIDENT [None]
  - SOMNAMBULISM [None]
